FAERS Safety Report 21879313 (Version 1)
Quarter: 2023Q1

REPORT INFORMATION
  Report Type: Other
  Country: US (occurrence: US)
  Receive Date: 20230118
  Receipt Date: 20230118
  Transmission Date: 20230418
  Serious: Yes (Hospitalization)
  Sender: FDA-Public Use
  Company Number: US-TRAVERE-2022TVT00348

PATIENT
  Age: 4 Year
  Sex: Male

DRUGS (1)
  1. CHOLBAM [Suspect]
     Active Substance: CHOLIC ACID
     Indication: Cerebrohepatorenal syndrome
     Dosage: DOSE: 50MG; TAKE 1 CAPSULE EVERY MORNING AND 2 ?CAPSULES EVERY EVENING
     Route: 048
     Dates: start: 20200826

REACTIONS (3)
  - Anaemia [Unknown]
  - Increased tendency to bruise [Unknown]
  - Hepatic enzyme abnormal [Unknown]

NARRATIVE: CASE EVENT DATE: 20220301
